FAERS Safety Report 9713276 (Version 1)
Quarter: 2013Q4

REPORT INFORMATION
  Report Type: Spontaneous
  Country: JP (occurrence: JP)
  Receive Date: 20131126
  Receipt Date: 20131126
  Transmission Date: 20140711
  Serious: Yes (Life-Threatening)
  Sender: FDA-Public Use
  Company Number: JP-ABBVIE-13P-087-1172392-00

PATIENT
  Age: 6 Year
  Sex: Female
  Weight: 20 kg

DRUGS (3)
  1. ULTANE [Suspect]
     Indication: WOUND
     Route: 055
     Dates: start: 20120720, end: 20120720
  2. ULTANE [Suspect]
     Indication: SURGERY
     Dates: start: 20120720, end: 20120720
  3. REMIFENTANIL HYDROCHLORIDE [Concomitant]
     Indication: SURGERY
     Dosage: 5 MG WAS DILUTED IN 50 ML, AND USED AT 9 ML/H DURING SURGERY
     Route: 042
     Dates: start: 20120720, end: 20120720

REACTIONS (1)
  - Asthma [Recovering/Resolving]
